FAERS Safety Report 5815574-3 (Version None)
Quarter: 2008Q3

REPORT INFORMATION
  Report Type: 
  Country: None (occurrence: None)
  Receive Date: 20080718
  Receipt Date: 20080707
  Transmission Date: 20090109
  Serious: Yes (Other)
  Sender: FDA-Public Use
  Company Number: AU-PFIZER INC-2008058631

PATIENT
  Age: 60 Year
  Sex: Male

DRUGS (2)
  1. CHANTIX [Suspect]
     Indication: SMOKING CESSATION THERAPY
  2. CIPRAMIL [Concomitant]
     Indication: DEPRESSION

REACTIONS (4)
  - CONFUSIONAL STATE [None]
  - HEAD DISCOMFORT [None]
  - IMPAIRED DRIVING ABILITY [None]
  - NAUSEA [None]
